FAERS Safety Report 9301378 (Version 1)
Quarter: 2013Q2

REPORT INFORMATION
  Report Type: Spontaneous
  Country: RO (occurrence: RO)
  Receive Date: 20130521
  Receipt Date: 20130521
  Transmission Date: 20140414
  Serious: Yes (Other)
  Sender: FDA-Public Use
  Company Number: RO-ROCHE-1224259

PATIENT
  Sex: Male

DRUGS (18)
  1. LEXOTANIL [Suspect]
     Indication: DEPRESSION
     Route: 065
     Dates: start: 20101001
  2. RIVOTRIL [Suspect]
     Indication: DEPRESSION
     Route: 065
     Dates: start: 20101001
  3. BILOBIL [Concomitant]
  4. BETASERC [Concomitant]
  5. DOXEPIN [Concomitant]
  6. EFECTIN [Concomitant]
  7. FENOBARBITAL [Concomitant]
  8. MEDAZEPAM [Concomitant]
  9. TRITTICO [Concomitant]
  10. QUARELIN [Concomitant]
  11. OMNIVITE [Concomitant]
  12. SEROQUEL [Concomitant]
  13. CIPRALEX [Concomitant]
  14. ANAFRANIL [Concomitant]
  15. ANXIAR [Concomitant]
  16. DEPAKINE [Concomitant]
  17. ESPRITAL [Concomitant]
  18. VALDOXAN [Concomitant]

REACTIONS (3)
  - Drug-induced liver injury [Not Recovered/Not Resolved]
  - Psychosomatic disease [Not Recovered/Not Resolved]
  - Seborrhoeic dermatitis [Not Recovered/Not Resolved]
